FAERS Safety Report 13152886 (Version 1)
Quarter: 2017Q1

REPORT INFORMATION
  Report Type: Spontaneous
  Country: FI (occurrence: FI)
  Receive Date: 20170126
  Receipt Date: 20170126
  Transmission Date: 20170428
  Serious: Yes (Death, Other)
  Sender: FDA-Public Use
  Company Number: FI-BAXTER-2017BAX001242

PATIENT
  Age: 82 Year
  Sex: Male

DRUGS (24)
  1. NOVANTRONE [Suspect]
     Active Substance: MITOXANTRONE HYDROCHLORIDE
     Indication: B-CELL LYMPHOMA RECURRENT
     Dosage: TOTAL 6 CYCLES OF R-MINE
     Route: 042
     Dates: start: 200710, end: 200802
  2. DOXYCYCLINE. [Suspect]
     Active Substance: DOXYCYCLINE
     Indication: JC VIRUS TEST POSITIVE
  3. VINCRISTINE [Suspect]
     Active Substance: VINCRISTINE
     Indication: B-CELL LYMPHOMA RECURRENT
     Dosage: TOTAL 6 CYCLES OF R-CHOP
     Route: 042
     Dates: start: 200406, end: 200410
  4. MABTHERA [Suspect]
     Active Substance: RITUXIMAB
     Indication: B-CELL LYMPHOMA RECURRENT
  5. ORMOX [Concomitant]
     Indication: PRODUCT USED FOR UNKNOWN INDICATION
     Route: 048
  6. UROMITEXAN 100 MG/ML INJEKTIONESTE, LIUOS [Suspect]
     Active Substance: MESNA
     Indication: B-CELL LYMPHOMA RECURRENT
     Dosage: TOTAL 6 CYCLES OF R-MINE THERAPY
     Route: 042
     Dates: start: 200710, end: 200802
  7. EXITOP [Suspect]
     Active Substance: ETOPOSIDE
     Indication: B-CELL LYMPHOMA RECURRENT
     Dosage: TOTAL 6 CYCLES OF R-MINE
     Route: 042
     Dates: start: 200710, end: 200802
  8. RITUXIMAB [Suspect]
     Active Substance: RITUXIMAB
     Indication: B-CELL LYMPHOMA RECURRENT
     Dosage: TOTAL 6 CYCLES OF R-CHOP
     Route: 042
     Dates: start: 200406, end: 200410
  9. MABTHERA [Suspect]
     Active Substance: RITUXIMAB
     Indication: B-CELL LYMPHOMA RECURRENT
     Dosage: MAINTENANCE THERAPY, TOTAL 30 SESSIONS
     Route: 042
     Dates: end: 2012
  10. HOLOXAN INJEKTIO/INFUUSIOKUIVA-AINE, LIUOSTA VARTEN [Suspect]
     Active Substance: IFOSFAMIDE
     Indication: B-CELL LYMPHOMA RECURRENT
     Dosage: TOTAL 6 CYCLES OF R-MINE THERAPY
     Route: 042
     Dates: start: 200710, end: 200802
  11. MIRTAZAPIN [Suspect]
     Active Substance: MIRTAZAPINE
     Indication: PROGRESSIVE MULTIFOCAL LEUKOENCEPHALOPATHY
     Route: 065
  12. DOXORUBICIN [Suspect]
     Active Substance: DOXORUBICIN
     Indication: B-CELL LYMPHOMA RECURRENT
     Dosage: TOTAL 6 CYCLES OF R-CHOP
     Route: 042
     Dates: start: 200406, end: 200410
  13. DOXYCYCLINE. [Suspect]
     Active Substance: DOXYCYCLINE
     Indication: PROGRESSIVE MULTIFOCAL LEUKOENCEPHALOPATHY
     Route: 065
  14. KALCIPOS-D [Concomitant]
     Active Substance: CALCIUM CARBONATE\CHOLECALCIFEROL
     Indication: PRODUCT USED FOR UNKNOWN INDICATION
     Dosage: STRENGTH: 500MG/400IU
     Route: 048
  15. MIRTAZAPIN [Suspect]
     Active Substance: MIRTAZAPINE
     Indication: JC VIRUS TEST POSITIVE
  16. FURESIS [Concomitant]
     Active Substance: FUROSEMIDE
     Indication: PRODUCT USED FOR UNKNOWN INDICATION
     Route: 048
  17. SENDOXAN 1000 MG INJEKTIOKUIVA-AINE, LIUOSTA VARTEN [Suspect]
     Active Substance: CYCLOPHOSPHAMIDE
     Indication: B-CELL LYMPHOMA RECURRENT
     Dosage: TOTAL 6 CYCLES OF R-CHOP
     Route: 042
     Dates: start: 200406, end: 200410
  18. LEUKERAN [Suspect]
     Active Substance: CHLORAMBUCIL
     Indication: B-CELL LYMPHOMA
     Route: 048
     Dates: start: 200212, end: 200403
  19. RITUXIMAB [Suspect]
     Active Substance: RITUXIMAB
     Indication: B-CELL LYMPHOMA RECURRENT
     Dosage: TOTAL 6 CYCLES OF R-MINE
     Route: 042
     Dates: start: 200710, end: 200802
  20. LEVACT [Suspect]
     Active Substance: BENDAMUSTINE HYDROCHLORIDE
     Indication: B-CELL LYMPHOMA RECURRENT
     Route: 042
     Dates: start: 201203, end: 201208
  21. CARDACE [Concomitant]
     Active Substance: RAMIPRIL
     Indication: PRODUCT USED FOR UNKNOWN INDICATION
     Route: 048
  22. PREDNISOLONE. [Suspect]
     Active Substance: PREDNISOLONE
     Indication: B-CELL LYMPHOMA RECURRENT
     Dosage: TOTAL 6 CYCLES OF R-CHOP
     Route: 042
     Dates: start: 200406, end: 200410
  23. MABTHERA [Suspect]
     Active Substance: RITUXIMAB
     Indication: B-CELL LYMPHOMA RECURRENT
     Route: 042
     Dates: end: 201208
  24. KLEXANE [Concomitant]
     Active Substance: ENOXAPARIN
     Indication: PRODUCT USED FOR UNKNOWN INDICATION
     Route: 058

REACTIONS (5)
  - Nightmare [Unknown]
  - JC virus test positive [Fatal]
  - Progressive multifocal leukoencephalopathy [Fatal]
  - Sleep terror [Unknown]
  - B-cell lymphoma recurrent [Unknown]

NARRATIVE: CASE EVENT DATE: 20130313
